FAERS Safety Report 9514129 (Version 3)
Quarter: 2015Q3

REPORT INFORMATION
  Report Type: Report from Study
  Country: DE (occurrence: DE)
  Receive Date: 20130910
  Receipt Date: 20150702
  Transmission Date: 20151125
  Serious: Yes (Hospitalization)
  Sender: FDA-Public Use
  Company Number: DE-ROCHE-1270275

PATIENT
  Age: 51 Year
  Sex: Female
  Weight: 59 kg

DRUGS (10)
  1. DEXAMETHASONE. [Concomitant]
     Active Substance: DEXAMETHASONE
     Route: 065
     Dates: start: 20130822, end: 20130822
  2. UROMITEXAN [Concomitant]
     Active Substance: MESNA
     Route: 065
     Dates: start: 20130822, end: 20130822
  3. FORTECORTIN [Concomitant]
     Active Substance: DEXAMETHASONE
     Route: 065
     Dates: start: 20130823, end: 20130824
  4. PACLITAXEL. [Suspect]
     Active Substance: PACLITAXEL
     Indication: BREAST CANCER
     Route: 065
  5. ALOXI [Concomitant]
     Active Substance: PALONOSETRON HYDROCHLORIDE
     Route: 065
     Dates: start: 20130822, end: 20130822
  6. EMEND [Concomitant]
     Active Substance: APREPITANT
     Dosage: 125/80 MG
     Route: 065
     Dates: start: 20130822, end: 20130824
  7. EPIRUBICIN [Suspect]
     Active Substance: EPIRUBICIN
     Indication: BREAST CANCER
     Dosage: LAST DOSE PRIOR TO SAE: 22/AUG/2013
     Route: 042
     Dates: start: 20130801
  8. TRASTUZUMAB [Suspect]
     Active Substance: TRASTUZUMAB
     Indication: BREAST CANCER
     Dosage: LAST DOSE PRIOR TO SAE: 22/AUG/2013
     Route: 042
     Dates: start: 20130430, end: 20130912
  9. PERTUZUMAB [Suspect]
     Active Substance: PERTUZUMAB
     Indication: BREAST CANCER
     Route: 065
     Dates: end: 20130704
  10. CYCLOPHOSPHAMIDE. [Suspect]
     Active Substance: CYCLOPHOSPHAMIDE
     Indication: BREAST CANCER
     Dosage: LAST DOSE PRIOR TO SAE: 22/AUG/2013
     Route: 042
     Dates: start: 20130801

REACTIONS (1)
  - General physical health deterioration [Recovered/Resolved]

NARRATIVE: CASE EVENT DATE: 20130828
